FAERS Safety Report 5621340-4 (Version None)
Quarter: 2008Q1

REPORT INFORMATION
  Report Type: 
  Country: None (occurrence: None)
  Receive Date: 20080211
  Receipt Date: 20080111
  Transmission Date: 20080703
  Serious: No
  Sender: FDA-Public Use
  Company Number: US-BAYER-200811417NA

PATIENT
  Age: 17 Year
  Sex: Female
  Weight: 64 kg

DRUGS (3)
  1. YAZ [Suspect]
     Indication: PREMENSTRUAL SYNDROME
     Route: 048
     Dates: start: 20070401
  2. YAZ [Suspect]
     Route: 048
     Dates: start: 20070801
  3. PROZAC [Concomitant]

REACTIONS (2)
  - HEADACHE [None]
  - MIGRAINE [None]
